FAERS Safety Report 5967145-6 (Version None)
Quarter: 2008Q4

REPORT INFORMATION
  Report Type: 
  Country: None (occurrence: None)
  Receive Date: 20081125
  Receipt Date: 20081015
  Transmission Date: 20090506
  Serious: No
  Sender: FDA-Public Use
  Company Number: US-AMGEN-KDL313733

PATIENT
  Sex: Male

DRUGS (3)
  1. ENBREL [Suspect]
     Indication: RHEUMATOID ARTHRITIS
     Route: 058
     Dates: start: 20080916
  2. METHOTREXATE [Concomitant]
     Dates: start: 20080425
  3. PREDNISONE TAB [Concomitant]

REACTIONS (1)
  - RHEUMATOID ARTHRITIS [None]
